FAERS Safety Report 5374137-7 (Version None)
Quarter: 2007Q2

REPORT INFORMATION
  Report Type: 
  Country: None (occurrence: None)
  Receive Date: 20070627
  Receipt Date: 20070615
  Transmission Date: 20071010
  Serious: Yes (Life-Threatening)
  Sender: FDA-Public Use
  Company Number: GXKR2007GB05183

PATIENT
  Age: 48 Year
  Sex: Female
  Weight: 55 kg

DRUGS (2)
  1. CITALOPRAM HYDROBROMIDE [Suspect]
     Dosage: 20 MG, QD, ORAL
     Route: 048
     Dates: start: 20070505
  2. EPIPEN [Suspect]
     Dosage: PRN, INTRAMUSCULAR
     Route: 030

REACTIONS (2)
  - ANAPHYLACTOID REACTION [None]
  - DRUG INEFFECTIVE [None]
